FAERS Safety Report 7270720-2 (Version None)
Quarter: 2011Q1

REPORT INFORMATION
  Report Type: 
  Country: None (occurrence: None)
  Receive Date: 20110202
  Receipt Date: 20110128
  Transmission Date: 20110831
  Serious: Yes (Other)
  Sender: FDA-Public Use
  Company Number: B0697124A

PATIENT
  Age: 16 Year
  Sex: Male

DRUGS (3)
  1. PL [Concomitant]
     Dosage: 3G PER DAY
     Route: 048
  2. LOXONIN [Concomitant]
     Dosage: 3IUAX PER DAY
     Route: 048
  3. RELENZA [Suspect]
     Indication: INFLUENZA
     Dosage: 4IUAX PER DAY
     Route: 055
     Dates: start: 20110119

REACTIONS (3)
  - ABNORMAL BEHAVIOUR [None]
  - DELIRIUM [None]
  - MEMORY IMPAIRMENT [None]
